FAERS Safety Report 8148660-6 (Version None)
Quarter: 2012Q1

REPORT INFORMATION
  Report Type: 
  Country: None (occurrence: None)
  Receive Date: 20120218
  Receipt Date: 20110624
  Transmission Date: 20120608
  Serious: No
  Sender: FDA-Public Use
  Company Number: US-ALLERGAN-1108597US

PATIENT
  Age: 68 Year
  Sex: Female

DRUGS (2)
  1. BOTOX COSMETIC [Suspect]
     Dosage: 3 UNITS, SINGLE
     Route: 030
     Dates: start: 20110613, end: 20110613
  2. BOTOX COSMETIC [Suspect]
     Indication: SKIN WRINKLING
     Dosage: 85 UNITS, SINGLE
     Route: 030
     Dates: start: 20110601, end: 20110601

REACTIONS (2)
  - EYELID PTOSIS [None]
  - LAGOPHTHALMOS [None]
